FAERS Safety Report 23242132 (Version 1)
Quarter: 2023Q4

REPORT INFORMATION
  Report Type: Spontaneous
  Country: IE (occurrence: IE)
  Receive Date: 20231129
  Receipt Date: 20231129
  Transmission Date: 20240110
  Serious: Yes (Other)
  Sender: FDA-Public Use
  Company Number: IE-MYLANLABS-2023M1126333

PATIENT
  Age: 49 Year
  Sex: Male

DRUGS (4)
  1. PHENYTOIN [Suspect]
     Active Substance: PHENYTOIN
     Indication: Sleep related hypermotor epilepsy
     Dosage: UNK
     Route: 065
  2. ESLICARBAZEPINE ACETATE [Suspect]
     Active Substance: ESLICARBAZEPINE ACETATE
     Indication: Sleep related hypermotor epilepsy
     Dosage: UNK
     Route: 065
  3. LAMOTRIGINE [Suspect]
     Active Substance: LAMOTRIGINE
     Indication: Sleep related hypermotor epilepsy
     Dosage: UNK
     Route: 065
  4. VALPROATE [Suspect]
     Active Substance: VALPROIC ACID
     Indication: Sleep related hypermotor epilepsy
     Dosage: UNK
     Route: 065

REACTIONS (1)
  - Drug ineffective [Unknown]
